FAERS Safety Report 6335945-9 (Version None)
Quarter: 2009Q3

REPORT INFORMATION
  Report Type: 
  Country: None (occurrence: None)
  Receive Date: 20090831
  Receipt Date: 20090831
  Transmission Date: 20100115
  Serious: Yes (Life-Threatening, Hospitalization)
  Sender: FDA-Public Use
  Company Number: None

PATIENT
  Age: 69 Year
  Sex: Female
  Weight: 82.1011 kg

DRUGS (1)
  1. MIRAPEX [Suspect]

REACTIONS (1)
  - ENDOMETRIAL CANCER STAGE I [None]
